FAERS Safety Report 5225112-4 (Version None)
Quarter: 2007Q1

REPORT INFORMATION
  Report Type: 
  Country: None (occurrence: None)
  Receive Date: 20070131
  Receipt Date: 20070122
  Transmission Date: 20070707
  Serious: Yes (Hospitalization)
  Sender: FDA-Public Use
  Company Number: US-ROCHE-455041

PATIENT
  Age: 53 Year
  Sex: Male
  Weight: 100.7 kg

DRUGS (6)
  1. PEGASYS [Suspect]
     Route: 058
     Dates: start: 20060406
  2. RIBAVIRIN [Suspect]
     Route: 048
     Dates: start: 20060406
  3. LIPITOR [Concomitant]
  4. GLIPIZIDE [Concomitant]
     Dosage: REPORTED AS GLYPIZIDE.
     Route: 048
     Dates: start: 20010615
  5. LISINOPRIL [Concomitant]
     Indication: HYPERTENSION
  6. METFORMIN HCL [Concomitant]
     Route: 048

REACTIONS (2)
  - CORONARY ARTERY OCCLUSION [None]
  - DEPRESSION [None]
